FAERS Safety Report 13539358 (Version 1)
Quarter: 2017Q2

REPORT INFORMATION
  Report Type: Spontaneous
  Country: US (occurrence: US)
  Receive Date: 20170512
  Receipt Date: 20170512
  Transmission Date: 20170830
  Serious: No
  Sender: FDA-Public Use
  Company Number: US-PFIZER INC-2017061439

PATIENT
  Age: 56 Year
  Sex: Female
  Weight: 51.7 kg

DRUGS (2)
  1. IBRANCE [Suspect]
     Active Substance: PALBOCICLIB
     Indication: BRAIN NEOPLASM MALIGNANT
     Dosage: 125 MG, CYCLIC, (1 DAILY, 21 ON 7 OFF)
     Route: 048
     Dates: start: 20170209
  2. IBRANCE [Suspect]
     Active Substance: PALBOCICLIB
     Dosage: 125 MG, CYCLIC (1 DAILY, 21 ON/7 OFF)
     Route: 048
     Dates: start: 201702, end: 201704

REACTIONS (2)
  - Product use in unapproved indication [Unknown]
  - Neoplasm progression [Unknown]

NARRATIVE: CASE EVENT DATE: 20170209
